FAERS Safety Report 11139710 (Version 2)
Quarter: 2015Q2

REPORT INFORMATION
  Report Type: Spontaneous
  Country: PK (occurrence: PK)
  Receive Date: 20150527
  Receipt Date: 20150618
  Transmission Date: 20150821
  Serious: Yes (Hospitalization, Other)
  Sender: FDA-Public Use
  Company Number: PK-PFIZER INC-2015177904

PATIENT
  Age: 35 Year
  Sex: Female

DRUGS (2)
  1. DEPO-MEDROL [Suspect]
     Active Substance: METHYLPREDNISOLONE ACETATE
     Indication: ASTHMA
     Dosage: 40 MG SINGLE DOSE
     Route: 030
  2. VENTOLINE /00139501/ [Concomitant]
     Active Substance: ALBUTEROL

REACTIONS (2)
  - Anaphylactic reaction [Recovered/Resolved]
  - Shock [Recovered/Resolved]
